FAERS Safety Report 16947385 (Version 3)
Quarter: 2021Q4

REPORT INFORMATION
  Report Type: Report from Study
  Country: US (occurrence: US)
  Receive Date: 20191022
  Receipt Date: 20211216
  Transmission Date: 20220303
  Serious: Yes (Life-Threatening, Other)
  Sender: FDA-Public Use
  Company Number: US-SHIRE-US201935245

PATIENT
  Sex: Male

DRUGS (14)
  1. PARATHYROID HORMONE [Suspect]
     Active Substance: PARATHYROID HORMONE
     Indication: Hypoparathyroidism
     Dosage: 100 MICROGRAM, 1X/DAY:QD
     Route: 065
  2. PARATHYROID HORMONE [Suspect]
     Active Substance: PARATHYROID HORMONE
     Indication: Hypoparathyroidism
     Dosage: 100 MICROGRAM, 1X/DAY:QD
     Route: 065
  3. PARATHYROID HORMONE [Suspect]
     Active Substance: PARATHYROID HORMONE
     Indication: Hypoparathyroidism
     Dosage: 100 MICROGRAM, 1X/DAY:QD
     Route: 065
  4. PARATHYROID HORMONE [Suspect]
     Active Substance: PARATHYROID HORMONE
     Indication: Primary hypoparathyroidism
     Dosage: 100 MICROGRAM, 2X/DAY:BID
     Route: 065
  5. PARATHYROID HORMONE [Suspect]
     Active Substance: PARATHYROID HORMONE
     Indication: Primary hypoparathyroidism
     Dosage: 100 MICROGRAM, 2X/DAY:BID
     Route: 065
  6. PARATHYROID HORMONE [Suspect]
     Active Substance: PARATHYROID HORMONE
     Indication: Primary hypoparathyroidism
     Dosage: 100 MICROGRAM, 2X/DAY:BID
     Route: 065
  7. PARATHYROID HORMONE [Suspect]
     Active Substance: PARATHYROID HORMONE
     Dosage: 800MCG PER WEEK (DAILY FOR 6 DAYS, BID FOR 1 DAY)
     Route: 058
     Dates: start: 20210623
  8. PARATHYROID HORMONE [Suspect]
     Active Substance: PARATHYROID HORMONE
     Dosage: 800MCG PER WEEK (DAILY FOR 6 DAYS, BID FOR 1 DAY)
     Route: 058
     Dates: start: 20210623
  9. PARATHYROID HORMONE [Suspect]
     Active Substance: PARATHYROID HORMONE
     Dosage: 800MCG PER WEEK (DAILY FOR 6 DAYS, BID FOR 1 DAY)
     Route: 058
     Dates: start: 20210623
  10. PARATHYROID HORMONE [Suspect]
     Active Substance: PARATHYROID HORMONE
     Dosage: 100 MICROGRAM, QD
     Route: 058
     Dates: start: 20210915
  11. PARATHYROID HORMONE [Suspect]
     Active Substance: PARATHYROID HORMONE
     Dosage: 100 MICROGRAM, QD
     Route: 058
     Dates: start: 20210915
  12. PARATHYROID HORMONE [Suspect]
     Active Substance: PARATHYROID HORMONE
     Dosage: 100 MICROGRAM, QD
     Route: 058
     Dates: start: 20210915
  13. CALCITRIOL [Concomitant]
     Active Substance: CALCITRIOL
     Indication: Product used for unknown indication
  14. PTH [Concomitant]
     Indication: Parathyroid disorder

REACTIONS (4)
  - Hypoparathyroidism [Unknown]
  - Blood parathyroid hormone increased [Not Recovered/Not Resolved]
  - Malabsorption [Unknown]
  - Recalled product [Unknown]
